FAERS Safety Report 7078874-8 (Version None)
Quarter: 2010Q4

REPORT INFORMATION
  Report Type: 
  Country: None (occurrence: None)
  Receive Date: 20101102
  Receipt Date: 20101028
  Transmission Date: 20110411
  Serious: Yes (Other)
  Sender: FDA-Public Use
  Company Number: US-SANOFI-AVENTIS-2010SA065851

PATIENT
  Age: 67 Year
  Sex: Male

DRUGS (8)
  1. OXALIPLATIN [Suspect]
     Route: 041
     Dates: start: 20091202, end: 20091202
  2. OXALIPLATIN [Suspect]
     Route: 041
     Dates: start: 20100303, end: 20100303
  3. XELODA [Suspect]
     Route: 048
     Dates: start: 20100630
  4. METHADONE [Concomitant]
  5. MORPHINE SULFATE [Concomitant]
     Indication: PAIN
  6. ADVAIR DISKUS 100/50 [Concomitant]
  7. ZOFRAN [Concomitant]
     Indication: NAUSEA
  8. MULTI-VITAMINS [Concomitant]

REACTIONS (2)
  - NERVE INJURY [None]
  - NEUROPATHY PERIPHERAL [None]
